FAERS Safety Report 5451034-X (Version None)
Quarter: 2007Q3

REPORT INFORMATION
  Report Type: 
  Country: None (occurrence: None)
  Receive Date: 20070911
  Receipt Date: 20070904
  Transmission Date: 20080115
  Serious: Yes (Hospitalization, Other)
  Sender: FDA-Public Use
  Company Number: 251-C5013-07090094

PATIENT
  Age: 67 Year

DRUGS (3)
  1. CC-5013 (LENALIDOMIDE) (CAPSULES) [Suspect]
     Indication: MULTIPLE MYELOMA
     Dosage: 10 MG, DAILY, ORAL : 10 MG, DAILY, ORAL
     Route: 048
     Dates: start: 20070516, end: 20070731
  2. CC-5013 (LENALIDOMIDE) (CAPSULES) [Suspect]
     Indication: MULTIPLE MYELOMA
     Dosage: 10 MG, DAILY, ORAL : 10 MG, DAILY, ORAL
     Route: 048
     Dates: start: 20070829
  3. CIPRINOL (CIPROFLOXACIN) [Concomitant]

REACTIONS (5)
  - ABSCESS [None]
  - BLOOD BILIRUBIN INCREASED [None]
  - CONDITION AGGRAVATED [None]
  - HAEMOGLOBIN ABNORMAL [None]
  - OSTEOMYELITIS [None]
